FAERS Safety Report 6600068-8 (Version None)
Quarter: 2010Q1

REPORT INFORMATION
  Report Type: 
  Country: None (occurrence: None)
  Receive Date: 20100224
  Receipt Date: 20100211
  Transmission Date: 20100710
  Serious: Yes (Hospitalization)
  Sender: FDA-Public Use
  Company Number: PHHY2010FR09191

PATIENT
  Sex: Male
  Weight: 97 kg

DRUGS (1)
  1. TASIGNA [Suspect]
     Indication: LUNG DISORDER
     Dosage: 800 MG DAILY
     Dates: start: 20091128

REACTIONS (10)
  - CARDIAC FAILURE CONGESTIVE [None]
  - DYSPNOEA [None]
  - HEPATOJUGULAR REFLUX [None]
  - HYPOXIA [None]
  - NODAL RHYTHM [None]
  - OEDEMA PERIPHERAL [None]
  - ORTHOPNOEA [None]
  - PNEUMONIA [None]
  - PYREXIA [None]
  - RENAL FAILURE [None]
